FAERS Safety Report 24041063 (Version 1)
Quarter: 2024Q3

REPORT INFORMATION
  Report Type: Spontaneous
  Country: ZA (occurrence: None)
  Receive Date: 20240702
  Receipt Date: 20240702
  Transmission Date: 20241016
  Serious: Yes (Hospitalization)
  Sender: ASTRAZENECA
  Company Number: 2024A145842

PATIENT
  Age: 39 Year
  Sex: Female

DRUGS (10)
  1. BUDESONIDE\FORMOTEROL [Suspect]
     Active Substance: BUDESONIDE\FORMOTEROL
     Indication: Asthma
     Dosage: UNKNOWN UNKNOWN
     Route: 055
  2. CORYX PAEDIATRIC [Concomitant]
  3. ALLERGEX [Concomitant]
     Indication: Hypersensitivity
  4. MONTELUKAST SODIUM [Concomitant]
     Active Substance: MONTELUKAST SODIUM
     Indication: Asthma
  5. FLONASE [Concomitant]
     Active Substance: FLUTICASONE PROPIONATE
     Indication: Hypersensitivity
  6. ALBUTEROL [Concomitant]
     Active Substance: ALBUTEROL
  7. ETIFOXINE [Concomitant]
     Active Substance: ETIFOXINE
  8. CEFPODOXIME PROXETIL [Concomitant]
     Active Substance: CEFPODOXIME PROXETIL
  9. PREDNISONE [Concomitant]
     Active Substance: PREDNISONE
  10. ACETYLCYSTEINE [Concomitant]
     Active Substance: ACETYLCYSTEINE

REACTIONS (2)
  - Asthma [Unknown]
  - Lung disorder [Unknown]
